FAERS Safety Report 6851447-5 (Version None)
Quarter: 2010Q3

REPORT INFORMATION
  Report Type: 
  Country: None (occurrence: None)
  Receive Date: 20100717
  Receipt Date: 20080416
  Transmission Date: 20110219
  Serious: No
  Sender: FDA-Public Use
  Company Number: US-PFIZER INC-2008006398

PATIENT
  Sex: Female

DRUGS (16)
  1. CHANTIX [Suspect]
     Indication: SMOKING CESSATION THERAPY
     Dates: start: 20070101
  2. FEXOFENADINE [Concomitant]
     Indication: HYPERSENSITIVITY
  3. AMITRIPTYLINE HYDROCHLORIDE [Concomitant]
  4. RISPERDAL [Concomitant]
  5. TIZANIDINE HCL [Concomitant]
  6. NEXIUM [Concomitant]
  7. LEXAPRO [Concomitant]
  8. PLAQUENIL [Concomitant]
  9. KLONOPIN [Concomitant]
  10. LAMICTAL [Concomitant]
  11. NIFEDIPINE [Concomitant]
     Indication: SYSTEMIC LUPUS ERYTHEMATOSUS
  12. TOPAMAX [Concomitant]
  13. BUTALBITAL [Concomitant]
  14. VALIUM [Concomitant]
  15. POLYETHYLENE GLYCOL [Concomitant]
  16. ALL OTHER THERAPEUTIC PRODUCTS [Concomitant]

REACTIONS (3)
  - ANXIETY [None]
  - NAUSEA [None]
  - SOMNOLENCE [None]
